FAERS Safety Report 4839788-4 (Version None)
Quarter: 2005Q4

REPORT INFORMATION
  Report Type: 
  Country: None (occurrence: None)
  Receive Date: 20051129
  Receipt Date: 20050908
  Transmission Date: 20060501
  Serious: No
  Sender: FDA-Public Use
  Company Number: US-GLAXOSMITHKLINE-A0573500A

PATIENT
  Age: 64 Year
  Sex: Female

DRUGS (10)
  1. WELLBUTRIN SR [Suspect]
     Indication: GASTROINTESTINAL DISORDER
     Route: 048
     Dates: start: 20030101
  2. WELLBUTRIN XL [Suspect]
     Indication: HYPERTENSION
     Dosage: 150MG PER DAY
     Route: 065
     Dates: start: 20050831, end: 20050907
  3. SYNTHROID [Concomitant]
  4. AVAPRO [Concomitant]
  5. PROTONIX [Concomitant]
  6. PEPCID [Concomitant]
  7. SINGULAIR [Concomitant]
  8. ZYRTEC [Concomitant]
  9. VITAMINS [Concomitant]
  10. MINERAL TAB [Concomitant]

REACTIONS (2)
  - DEPRESSION [None]
  - SOMNOLENCE [None]
